FAERS Safety Report 7215869-5 (Version None)
Quarter: 2011Q1

REPORT INFORMATION
  Report Type: 
  Country: None (occurrence: None)
  Receive Date: 20110107
  Receipt Date: 20110104
  Transmission Date: 20110831
  Serious: Yes (Other)
  Sender: FDA-Public Use
  Company Number: CH-PFIZER INC-2011002104

PATIENT
  Sex: Male

DRUGS (2)
  1. INSPRA [Suspect]
     Indication: GYNAECOMASTIA
  2. ALDACTONE [Suspect]

REACTIONS (1)
  - IMPLANTABLE DEFIBRILLATOR INSERTION [None]
